FAERS Safety Report 13204565 (Version 2)
Quarter: 2017Q1

REPORT INFORMATION
  Report Type: Report from Study
  Country: CH (occurrence: CH)
  Receive Date: 20170209
  Receipt Date: 20170217
  Transmission Date: 20170428
  Serious: Yes (Life-Threatening, Hospitalization)
  Sender: FDA-Public Use
  Company Number: CH-ASTRAZENECA-2017SE13850

PATIENT
  Age: 28226 Day
  Sex: Female

DRUGS (14)
  1. TICAGRELOR [Suspect]
     Active Substance: TICAGRELOR
     Indication: THROMBOSIS PROPHYLAXIS
     Route: 048
     Dates: start: 20151201, end: 20160417
  2. ACETYLSALICYLIC ACID [Suspect]
     Active Substance: ASPIRIN
     Indication: THROMBOSIS PROPHYLAXIS
     Dosage: 180 MG (90 MG,2 IN 1 D) NON-AZ PRODUCT
     Route: 048
     Dates: start: 20150604
  3. AMLODIPINE [Concomitant]
     Active Substance: AMLODIPINE BESYLATE
     Route: 048
     Dates: start: 20160331, end: 20160412
  4. INEGY [Concomitant]
     Active Substance: EZETIMIBE\SIMVASTATIN
  5. TARGIN [Concomitant]
     Active Substance: NALOXONE HYDROCHLORIDE\OXYCODONE HYDROCHLORIDE
     Dosage: 5/2.5 (MG,2 IN 1 D)
     Route: 048
     Dates: start: 20160412
  6. TICAGRELOR [Suspect]
     Active Substance: TICAGRELOR
     Indication: THROMBOSIS PROPHYLAXIS
     Route: 048
     Dates: start: 20150604, end: 20160412
  7. COLCHICINE. [Concomitant]
     Active Substance: COLCHICINE
     Route: 048
     Dates: start: 20160331
  8. PANTOPRAZOLE [Concomitant]
     Active Substance: PANTOPRAZOLE SODIUM
     Route: 048
     Dates: start: 20160412
  9. BUDENOFALK [Concomitant]
     Active Substance: BUDESONIDE
     Route: 048
  10. DAFALGAN [Concomitant]
     Active Substance: ACETAMINOPHEN
     Dosage: 2000 MG (500 MG,4 IN 1 D)
     Route: 048
     Dates: start: 20150331
  11. RAMIPRIL. [Concomitant]
     Active Substance: RAMIPRIL
     Route: 048
     Dates: start: 20150604
  12. METOPROLOL. [Concomitant]
     Active Substance: METOPROLOL
     Route: 048
     Dates: start: 20150604
  13. SERESTA [Concomitant]
     Active Substance: OXAZEPAM
     Dosage: 15.0MG AS REQUIRED
     Route: 048
     Dates: start: 20160412
  14. MOVICOL [Concomitant]
     Active Substance: POLYETHYLENE GLYCOL 3350\POTASSIUM CHLORIDE\SODIUM BICARBONATE\SODIUM CHLORIDE
     Dosage: 1 IN 1 AS REQUIRED)
     Route: 048
     Dates: start: 20160331, end: 20160412

REACTIONS (1)
  - Pulmonary embolism [Recovered/Resolved]

NARRATIVE: CASE EVENT DATE: 20160412
